FAERS Safety Report 25929763 (Version 1)
Quarter: 2025Q4

REPORT INFORMATION
  Report Type: Report from Study
  Country: US (occurrence: US)
  Receive Date: 20251016
  Receipt Date: 20251016
  Transmission Date: 20260118
  Serious: Yes (Death)
  Sender: ROCHE
  Company Number: US-ROCHE-10000412093

PATIENT
  Age: 85 Year
  Sex: Female

DRUGS (6)
  1. ACTEMRA [Suspect]
     Active Substance: TOCILIZUMAB
     Indication: Giant cell arteritis
     Dosage: INFUSE 6MG/KG INTRAVENOUSLY EVERY 4 WEEK(S)
     Route: 042
  2. ACTEMRA [Suspect]
     Active Substance: TOCILIZUMAB
     Indication: Hypothyroidism
  3. ACTEMRA [Suspect]
     Active Substance: TOCILIZUMAB
     Indication: Mood altered
  4. ACTEMRA [Suspect]
     Active Substance: TOCILIZUMAB
     Indication: Blepharitis
  5. ACTEMRA [Suspect]
     Active Substance: TOCILIZUMAB
     Indication: Hypercholesterolaemia
  6. ACTEMRA [Suspect]
     Active Substance: TOCILIZUMAB
     Indication: Parkinsonism

REACTIONS (2)
  - Death [Fatal]
  - Off label use [Fatal]

NARRATIVE: CASE EVENT DATE: 20251009
